FAERS Safety Report 6439590-6 (Version None)
Quarter: 2009Q4

REPORT INFORMATION
  Report Type: 
  Country: None (occurrence: None)
  Receive Date: 20091113
  Receipt Date: 20091104
  Transmission Date: 20100525
  Serious: Yes (Hospitalization)
  Sender: FDA-Public Use
  Company Number: B0601796A

PATIENT
  Age: 62 Year
  Sex: Female

DRUGS (6)
  1. ARIXTRA [Suspect]
     Indication: DEEP VEIN THROMBOSIS
     Dosage: 7.5MG PER DAY
     Route: 058
     Dates: start: 20090715, end: 20090725
  2. TAVANIC [Concomitant]
     Route: 065
     Dates: start: 20090701, end: 20090701
  3. ORBENIN CAP [Concomitant]
     Route: 065
     Dates: start: 20090701, end: 20090701
  4. GENTAMICIN [Concomitant]
     Route: 065
     Dates: start: 20090701, end: 20090701
  5. VANCOMYCIN [Concomitant]
     Route: 065
     Dates: start: 20090711, end: 20090717
  6. AVLOCARDYL [Concomitant]
     Indication: ARRHYTHMIA SUPRAVENTRICULAR
     Route: 065

REACTIONS (7)
  - ELECTROCARDIOGRAM QT PROLONGED [None]
  - HAEMATOMA [None]
  - HAEMOGLOBIN DECREASED [None]
  - HYPOCALCAEMIA [None]
  - HYPOKALAEMIA [None]
  - RENAL TUBULAR DISORDER [None]
  - SHOCK HAEMORRHAGIC [None]
